FAERS Safety Report 4648384-3 (Version None)
Quarter: 2005Q2

REPORT INFORMATION
  Report Type: 
  Country: None (occurrence: None)
  Receive Date: 20050427
  Receipt Date: 20050421
  Transmission Date: 20051028
  Serious: Yes (Death)
  Sender: FDA-Public Use
  Company Number: 2005-127054-NL

PATIENT
  Age: 71 Year
  Sex: Male

DRUGS (8)
  1. VECURONIUM BROMIDE [Suspect]
     Indication: ANAESTHESIA
     Dosage: 8 MG ONCE/2 MG ONCE/2 MG ONCE/ 1 MG ONCE, INTRAVENOUS BOLUS
     Route: 040
     Dates: start: 20050328, end: 20050328
  2. VECURONIUM BROMIDE [Suspect]
     Indication: ANAESTHESIA
     Dosage: 8 MG ONCE/2 MG ONCE/2 MG ONCE/ 1 MG ONCE, INTRAVENOUS BOLUS
     Route: 040
     Dates: start: 20050328, end: 20050328
  3. VECURONIUM BROMIDE [Suspect]
     Indication: ANAESTHESIA
     Dosage: 8 MG ONCE/2 MG ONCE/2 MG ONCE/ 1 MG ONCE, INTRAVENOUS BOLUS
     Route: 040
     Dates: start: 20050328, end: 20050328
  4. FENTANYL CITRATE [Concomitant]
  5. PROPOFOL [Concomitant]
  6. FUROSEMIDE [Concomitant]
  7. POTASSIUM CHLORIDE [Concomitant]
  8. FAMOTIDINE [Concomitant]

REACTIONS (4)
  - ANAESTHETIC COMPLICATION [None]
  - HYPOPNOEA [None]
  - METASTASES TO LIVER [None]
  - NEUROMUSCULAR BLOCK PROLONGED [None]
